FAERS Safety Report 25853543 (Version 4)
Quarter: 2025Q4

REPORT INFORMATION
  Report Type: Spontaneous
  Country: JP (occurrence: JP)
  Receive Date: 20250926
  Receipt Date: 20251229
  Transmission Date: 20260118
  Serious: Yes (Other)
  Sender: ELI LILLY AND COMPANY
  Company Number: JP-NShinyaku-EVA202512818ZZLILLY

PATIENT
  Age: 54 Year
  Sex: Female
  Weight: 68.7 kg

DRUGS (28)
  1. TADALAFIL [Suspect]
     Active Substance: TADALAFIL
     Indication: Pulmonary arterial hypertension
     Dosage: 40 MG, DAILY
     Route: 048
     Dates: start: 20200407
  2. FUROSEMIDE [Suspect]
     Active Substance: FUROSEMIDE
     Indication: Pulmonary arterial hypertension
     Dosage: 100 MG, DAILY
     Route: 042
     Dates: start: 20200406, end: 202004
  3. FUROSEMIDE [Suspect]
     Active Substance: FUROSEMIDE
     Indication: Heart failure with preserved ejection fraction
     Dosage: 60 MG, DAILY
     Route: 042
     Dates: start: 202004, end: 20200422
  4. FUROSEMIDE [Suspect]
     Active Substance: FUROSEMIDE
     Dosage: 60 MG, DAILY
     Route: 042
     Dates: start: 20200507, end: 20200520
  5. FUROSEMIDE [Suspect]
     Active Substance: FUROSEMIDE
     Dosage: 40 MG, DAILY
     Route: 042
     Dates: start: 202006, end: 202007
  6. FUROSEMIDE [Suspect]
     Active Substance: FUROSEMIDE
     Dosage: 100 MG
     Dates: start: 202004, end: 202004
  7. UPTRAVI [Suspect]
     Active Substance: SELEXIPAG
     Indication: Pulmonary arterial hypertension
     Dosage: 0.4 MG, DAILY
     Route: 048
     Dates: start: 20200527
  8. UPTRAVI [Suspect]
     Active Substance: SELEXIPAG
     Dosage: 0.8 MG, DAILY
     Route: 048
     Dates: start: 20200531, end: 202006
  9. UPTRAVI [Suspect]
     Active Substance: SELEXIPAG
     Dosage: 1.2 MG, DAILY
     Route: 048
     Dates: start: 202006, end: 202007
  10. UPTRAVI [Suspect]
     Active Substance: SELEXIPAG
     Dosage: 1.6 MG, DAILY
     Route: 048
     Dates: start: 202007, end: 202007
  11. UPTRAVI [Suspect]
     Active Substance: SELEXIPAG
     Dosage: 2.0 MG, DAILY
     Route: 048
     Dates: start: 20200728
  12. UPTRAVI [Suspect]
     Active Substance: SELEXIPAG
     Dosage: 2.4 MG, DAILY
     Route: 048
     Dates: start: 202007, end: 202007
  13. UPTRAVI [Suspect]
     Active Substance: SELEXIPAG
     Dosage: 2.8 MG, DAILY
     Route: 048
     Dates: start: 20200705
  14. UPTRAVI [Suspect]
     Active Substance: SELEXIPAG
     Dosage: 3.2 MG, DAILY
     Route: 048
     Dates: start: 20200712
  15. AMBRISENTAN [Suspect]
     Active Substance: AMBRISENTAN
     Indication: Pulmonary arterial hypertension
     Dosage: 5 MG, DAILY
     Route: 048
     Dates: start: 20200427, end: 20200520
  16. DOBUTAMINE HYDROCHLORIDE [Concomitant]
     Active Substance: DOBUTAMINE HYDROCHLORIDE
     Indication: Pulmonary arterial hypertension
     Dosage: 2 G, UNKNOWN
     Route: 042
     Dates: start: 202004, end: 202004
  17. DOBUTAMINE HYDROCHLORIDE [Concomitant]
     Active Substance: DOBUTAMINE HYDROCHLORIDE
     Dosage: 5 G, UNKNOWN
     Route: 042
     Dates: start: 202004, end: 202004
  18. DOBUTAMINE HYDROCHLORIDE [Concomitant]
     Active Substance: DOBUTAMINE HYDROCHLORIDE
     Dosage: 3 G, UNKNOWN
     Route: 042
     Dates: start: 202004, end: 202004
  19. DOBUTAMINE HYDROCHLORIDE [Concomitant]
     Active Substance: DOBUTAMINE HYDROCHLORIDE
     Dosage: 2 G, UNKNOWN
     Route: 042
     Dates: start: 202004
  20. DOBUTAMINE HYDROCHLORIDE [Concomitant]
     Active Substance: DOBUTAMINE HYDROCHLORIDE
     Dosage: 3 G, UNKNOWN
     Route: 042
     Dates: start: 2020, end: 2020
  21. OPSUMIT [Concomitant]
     Active Substance: MACITENTAN
     Indication: Pulmonary arterial hypertension
     Dosage: 10 MG, DAILY
     Route: 048
     Dates: start: 20200520
  22. AZOSEMIDE [Concomitant]
     Active Substance: AZOSEMIDE
     Dosage: 60 MG, DAILY
     Route: 048
     Dates: start: 20200422
  23. SPIRONOLACTONE [Concomitant]
     Active Substance: SPIRONOLACTONE
     Dosage: 25 MG, DAILY
     Route: 048
     Dates: start: 202004, end: 202004
  24. SPIRONOLACTONE [Concomitant]
     Active Substance: SPIRONOLACTONE
     Dosage: 50 MG, DAILY
     Route: 048
     Dates: start: 20200422
  25. SAMSCA [Concomitant]
     Active Substance: TOLVAPTAN
     Dosage: 3.75 MG, DAILY
     Route: 048
     Dates: start: 20200628
  26. SAMSCA [Concomitant]
     Active Substance: TOLVAPTAN
     Dosage: 7.5 MG, DAILY
     Route: 048
     Dates: start: 202007
  27. DOPAMINE HYDROCHLORIDE [Concomitant]
     Active Substance: DOPAMINE HYDROCHLORIDE
     Dosage: 2 DOSAGE FORM
     Route: 042
     Dates: start: 202004, end: 202004
  28. DOPAMINE HYDROCHLORIDE [Concomitant]
     Active Substance: DOPAMINE HYDROCHLORIDE
     Dosage: 1 DOSAGE FORM
     Route: 042
     Dates: start: 202004, end: 202004

REACTIONS (8)
  - Right ventricular failure [Recovered/Resolved]
  - Weight increased [Recovered/Resolved]
  - Inferior vena cava dilatation [Unknown]
  - Weight increased [Unknown]
  - Weight increased [Unknown]
  - Diarrhoea [Recovered/Resolved]
  - Cardiothoracic ratio increased [Recovered/Resolved]
  - Renal impairment [Recovered/Resolved]

NARRATIVE: CASE EVENT DATE: 20200507
